FAERS Safety Report 7244161-8 (Version None)
Quarter: 2011Q1

REPORT INFORMATION
  Report Type: 
  Country: None (occurrence: None)
  Receive Date: 20110119
  Receipt Date: 20110119
  Transmission Date: 20110831
  Serious: Yes (Hospitalization)
  Sender: FDA-Public Use
  Company Number: None

PATIENT
  Age: 43 Year
  Sex: Female
  Weight: 70 kg

DRUGS (1)
  1. TRIAD ALCOHOL PREP NA TRIAD/GENETECH [Suspect]

REACTIONS (1)
  - ABDOMINAL ABSCESS [None]
